FAERS Safety Report 17253220 (Version 1)
Quarter: 2019Q4

REPORT INFORMATION
  Report Type: Spontaneous
  Country: US (occurrence: US)
  Receive Date: 20191216
  Receipt Date: 20191216
  Transmission Date: 20200122
  Serious: Yes (Hospitalization)
  Sender: FDA-Public Use
  Company Number: None

PATIENT
  Age: 23 Year
  Sex: Male

DRUGS (1)
  1. HUMIRA [Suspect]
     Active Substance: ADALIMUMAB
     Dosage: ?          OTHER DOSE:40 MG /0.4 ML PEN;?
     Route: 058
     Dates: start: 20190131

REACTIONS (2)
  - Condition aggravated [None]
  - Inflammation [None]

NARRATIVE: CASE EVENT DATE: 20191216
